FAERS Safety Report 9441965 (Version 1)
Quarter: 2013Q3

REPORT INFORMATION
  Report Type: Report from Study
  Country: ZA (occurrence: ZA)
  Receive Date: 20130806
  Receipt Date: 20130806
  Transmission Date: 20140515
  Serious: Yes (Death, Hospitalization)
  Sender: FDA-Public Use
  Company Number: ZA-ROCHE-1232653

PATIENT
  Age: 69 Year
  Sex: Male

DRUGS (2)
  1. MIRCERA [Suspect]
     Indication: NEPHROGENIC ANAEMIA
     Route: 058
     Dates: start: 201203
  2. MIRCERA [Suspect]
     Route: 058
     Dates: start: 201211, end: 201306

REACTIONS (3)
  - Diabetes mellitus inadequate control [Unknown]
  - Sepsis [Unknown]
  - Death [Fatal]
